FAERS Safety Report 16426101 (Version 1)
Quarter: 2019Q2

REPORT INFORMATION
  Report Type: Spontaneous
  Country: GB (occurrence: GB)
  Receive Date: 20190613
  Receipt Date: 20190613
  Transmission Date: 20190711
  Serious: Yes (Hospitalization)
  Sender: FDA-Public Use
  Company Number: GB-TEVA-2019-GB-1061618

PATIENT
  Age: 80 Year
  Sex: Female
  Weight: 57 kg

DRUGS (16)
  1. RAMIPRIL. [Suspect]
     Active Substance: RAMIPRIL
     Indication: ESSENTIAL HYPERTENSION
     Dosage: IN THE MORNING
     Route: 048
     Dates: start: 20190108, end: 20190507
  2. ZOMORPH [Concomitant]
     Active Substance: MORPHINE SULFATE
  3. LANSOPRAZOLE. [Concomitant]
     Active Substance: LANSOPRAZOLE
  4. MIRTAZAPINE. [Concomitant]
     Active Substance: MIRTAZAPINE
  5. FENTANYL. [Concomitant]
     Active Substance: FENTANYL
  6. GABAPENTIN. [Concomitant]
     Active Substance: GABAPENTIN
  7. LACTULOSE. [Concomitant]
     Active Substance: LACTULOSE
  8. CLONAZEPAM. [Concomitant]
     Active Substance: CLONAZEPAM
  9. IBUPROFEN. [Concomitant]
     Active Substance: IBUPROFEN
  10. CARBOMERS [Concomitant]
  11. ADCAL-D3 [Concomitant]
     Active Substance: CALCIUM CARBONATE\CHOLECALCIFEROL
  12. PARACETAMOL [Concomitant]
     Active Substance: ACETAMINOPHEN
  13. FLUOXETINE [Concomitant]
     Active Substance: FLUOXETINE HYDROCHLORIDE
  14. PROPRANOLOL [Concomitant]
     Active Substance: PROPRANOLOL HYDROCHLORIDE
  15. CASSIA [Concomitant]
  16. ACETYLSALICYLIC ACID [Concomitant]
     Active Substance: ASPIRIN

REACTIONS (1)
  - Fall [Recovered/Resolved with Sequelae]

NARRATIVE: CASE EVENT DATE: 20190506
